FAERS Safety Report 5040668-2 (Version None)
Quarter: 2006Q2

REPORT INFORMATION
  Report Type: 
  Country: None (occurrence: None)
  Receive Date: 20060629
  Receipt Date: 20060629
  Transmission Date: 20061013
  Serious: Yes (Other)
  Sender: FDA-Public Use
  Company Number: None

PATIENT
  Sex: Male

DRUGS (12)
  1. LOVASTATIN [Suspect]
     Indication: HYPERLIPIDAEMIA
     Dosage: 20 MG ONCE DAILY ORALLY
     Route: 048
     Dates: start: 20040827, end: 20050418
  2. SIMVASTATIN [Suspect]
     Indication: HYPERLIPIDAEMIA
     Dosage: 30 MG ONCE DAILY ORALLY
     Route: 048
     Dates: start: 20050628, end: 20051218
  3. GLUCOSAMINE W/ CHONDROITIN [Concomitant]
  4. M.V.I. [Concomitant]
  5. COQ10 [Concomitant]
  6. GLYBURIDE [Concomitant]
  7. PRAZOSIN HCL [Concomitant]
  8. LISINOPRIL [Concomitant]
  9. ASPIRIN [Concomitant]
  10. HYDROXYZINE [Concomitant]
  11. METFORMIN [Concomitant]
  12. FLUOCINONIDE [Concomitant]

REACTIONS (1)
  - RASH PRURITIC [None]
